FAERS Safety Report 13065806 (Version 2)
Quarter: 2017Q1

REPORT INFORMATION
  Report Type: Spontaneous
  Country: CA (occurrence: CA)
  Receive Date: 20161227
  Receipt Date: 20170126
  Transmission Date: 20170428
  Serious: Yes (Other)
  Sender: FDA-Public Use
  Company Number: CA-PFIZER INC-2016210349

PATIENT
  Age: 43 Year
  Sex: Female

DRUGS (4)
  1. XELJANZ [Suspect]
     Active Substance: TOFACITINIB CITRATE
     Indication: RHEUMATOID ARTHRITIS
     Dosage: 5 MG, 2X/DAY
     Route: 048
     Dates: start: 20160318, end: 20160406
  2. XELJANZ [Suspect]
     Active Substance: TOFACITINIB CITRATE
     Dosage: 5 MG, DAILY
     Route: 048
     Dates: start: 20160412
  3. XELJANZ [Suspect]
     Active Substance: TOFACITINIB CITRATE
     Dosage: 5 MG, 2X/DAY
     Route: 048
     Dates: start: 20160614, end: 20170119
  4. ATENOLOL. [Concomitant]
     Active Substance: ATENOLOL
     Dosage: UNK

REACTIONS (7)
  - Hepatic failure [Not Recovered/Not Resolved]
  - Drug ineffective [Unknown]
  - Cough [Recovered/Resolved]
  - Acute kidney injury [Not Recovered/Not Resolved]
  - Liver function test increased [Unknown]
  - Headache [Not Recovered/Not Resolved]
  - Pyrexia [Recovered/Resolved]

NARRATIVE: CASE EVENT DATE: 201604
